FAERS Safety Report 17020670 (Version 1)
Quarter: 2019Q4

REPORT INFORMATION
  Report Type: Spontaneous
  Country: US (occurrence: US)
  Receive Date: 20191007
  Receipt Date: 20191007
  Transmission Date: 20200122
  Serious: No
  Sender: FDA-Public Use
  Company Number: None

PATIENT
  Age: 43 Year
  Sex: Female

DRUGS (1)
  1. MYCOPHENOLATE MOFETIL 500MG TABLET [Suspect]
     Active Substance: MYCOPHENOLATE MOFETIL
     Indication: SYSTEMIC LUPUS ERYTHEMATOSUS
     Route: 048
     Dates: start: 201903

REACTIONS (8)
  - Fibromyalgia [None]
  - Arthralgia [None]
  - Condition aggravated [None]
  - Systemic lupus erythematosus [None]
  - Stomatitis [None]
  - Nausea [None]
  - Diarrhoea [None]
  - Rheumatoid arthritis [None]

NARRATIVE: CASE EVENT DATE: 20191004
